FAERS Safety Report 24840298 (Version 2)
Quarter: 2025Q2

REPORT INFORMATION
  Report Type: Spontaneous
  Country: GB (occurrence: GB)
  Receive Date: 20250114
  Receipt Date: 20250513
  Transmission Date: 20250716
  Serious: Yes (Hospitalization, Other)
  Sender: MYLAN
  Company Number: GB-MYLANLABS-2025M1002751

PATIENT
  Sex: Female

DRUGS (2)
  1. CLOZARIL [Suspect]
     Active Substance: CLOZAPINE
     Indication: Schizophrenia
     Dates: start: 20151103, end: 20250425
  2. CLOZARIL [Suspect]
     Active Substance: CLOZAPINE

REACTIONS (2)
  - Thrombocytopenia [Not Recovered/Not Resolved]
  - Differential white blood cell count abnormal [Unknown]
